FAERS Safety Report 4306984-4 (Version None)
Quarter: 2004Q1

REPORT INFORMATION
  Report Type: 
  Country: None (occurrence: None)
  Receive Date: 20040227
  Receipt Date: 20020501
  Transmission Date: 20041129
  Serious: Yes (Hospitalization)
  Sender: FDA-Public Use
  Company Number: US-BRISTOL-MYERS SQUIBB COMPANY-11848215

PATIENT
  Age: 2 Year
  Sex: Female

DRUGS (8)
  1. VIDEX [Suspect]
     Dosage: THERAPY INITIATED WEEK 26 OF GESTATION
     Route: 064
     Dates: end: 19980408
  2. ZERIT [Suspect]
     Dosage: THERAPY INITIATED WEEK 26 OF GESTATION
     Route: 064
     Dates: end: 19980408
  3. RETROVIR [Suspect]
     Dosage: THERAPY INITIATED WEEK 13 AND DISCONTINUED WEEK 26 OF GESTATION
     Route: 064
  4. NORVIR [Suspect]
     Dosage: THERAPY INITIATED WEEK 17 AND DISCONTINUED WEEK 28 OF GESTATION
     Route: 064
  5. EPIVIR [Suspect]
     Dosage: THERAPY INITIATED WEEK 17 AND DISCONTINUED WEEK 26 OF GESTATION
     Route: 064
  6. INVIRASE [Suspect]
     Dosage: THERAPY INITIATED WEEK 17 AND DISCONTINUED WEEK 38 OF GESTATION
     Route: 064
  7. ZIDOVUDINE [Suspect]
     Dosage: ORAL SYRUP
     Route: 048
     Dates: start: 19980408, end: 19980101
  8. LAMIVUDINE [Suspect]
     Dosage: ORAL SYRUP
     Route: 048
     Dates: start: 19980409, end: 19980101

REACTIONS (3)
  - CEREBROVASCULAR DISORDER [None]
  - MATERNAL DRUGS AFFECTING FOETUS [None]
  - NUCLEAR MAGNETIC RESONANCE IMAGING ABNORMAL [None]
